FAERS Safety Report 9071588 (Version 1)
Quarter: 2013Q1

REPORT INFORMATION
  Report Type: Report from Study
  Country: US (occurrence: US)
  Receive Date: 20130129
  Receipt Date: 20130129
  Transmission Date: 20140127
  Serious: No
  Sender: FDA-Public Use
  Company Number: US-ABBOTT-12P-163-0924645-00

PATIENT
  Age: 58 Year
  Sex: Female

DRUGS (21)
  1. HUMIRA 40 MG/0.8 ML PEN [Suspect]
     Indication: RHEUMATOID ARTHRITIS
     Dates: start: 201111
  2. FOLIC ACID [Concomitant]
     Indication: NAUSEA
     Dosage: 1MG X 2 TABS DAILY=2MG
     Route: 048
  3. FOLIC ACID [Concomitant]
     Indication: DRUG THERAPY
  4. METHOTREXATE [Concomitant]
     Indication: RHEUMATOID ARTHRITIS
     Dosage: 6 TABS WEEKLY
     Route: 048
  5. VITAMIN D [Concomitant]
     Indication: HYPOVITAMINOSIS
     Dosage: DAILY
     Route: 048
  6. LEXAPRO [Concomitant]
     Indication: DEPRESSION
     Dosage: DAILY
     Route: 048
  7. COREG [Concomitant]
     Indication: HEART RATE INCREASED
     Dosage: 6.25MGX 1 TABX TWICE DAILY=12.5MG
     Route: 048
  8. AMBIEN [Concomitant]
     Indication: SLEEP DISORDER
     Dosage: AT BEDTIME
  9. ADVAIR [Concomitant]
     Indication: ASTHMA
  10. SINGULAIR [Concomitant]
     Indication: ASTHMA
     Dosage: AT BED TIME
  11. OMEPRAZOLE [Concomitant]
     Indication: GASTROOESOPHAGEAL REFLUX DISEASE
     Dosage: BEFORE BREAKFAST
  12. OMEPRAZOLE [Concomitant]
     Indication: GASTROOESOPHAGEAL REFLUX DISEASE
  13. NEURONTIN [Concomitant]
     Indication: NECK PAIN
  14. NEURONTIN [Concomitant]
     Indication: SURGERY
  15. AVINZA [Concomitant]
     Indication: PAIN
     Dosage: DAILY
     Route: 048
  16. AVINZA [Concomitant]
     Indication: RHEUMATOID ARTHRITIS
  17. THEOPHYLLINE [Concomitant]
     Indication: ASTHMA
  18. VALIUM [Concomitant]
     Indication: MYALGIA
     Dosage: AS NEEDED
     Route: 048
  19. ALBUTEROL [Concomitant]
     Indication: ASTHMA
     Dosage: EVERY 4-6 HOURS, AS NEEDED
  20. OXYCODONE [Concomitant]
     Indication: BREAKTHROUGH PAIN
     Dosage: 1-2 TABS
     Route: 048
  21. OXYCODONE [Concomitant]
     Indication: RHEUMATOID ARTHRITIS

REACTIONS (1)
  - Alopecia [Not Recovered/Not Resolved]
